FAERS Safety Report 10484250 (Version 1)
Quarter: 2014Q3

REPORT INFORMATION
  Report Type: Spontaneous
  Country: FR (occurrence: FR)
  Receive Date: 20140930
  Receipt Date: 20140930
  Transmission Date: 20150326
  Serious: Yes (Hospitalization, Other)
  Sender: FDA-Public Use
  Company Number: PHHY2014FR123475

PATIENT
  Age: 48 Year
  Sex: Male

DRUGS (3)
  1. EXFORGE [Suspect]
     Active Substance: AMLODIPINE BESYLATE\VALSARTAN
     Dosage: 10/160 MG (VALSARTAN 160 MG, AMLODIPINE 10 MG, UNK
     Route: 048
  2. EXFORGE [Suspect]
     Active Substance: AMLODIPINE BESYLATE\VALSARTAN
     Indication: HYPERTENSION
     Dosage: 01 DF, (VALSARTAN 160 MG, AMLODIPINE 5 MG), DAILY
     Route: 048
  3. LAROXYL [Concomitant]
     Active Substance: AMITRIPTYLINE
     Indication: MIGRAINE
     Dosage: 40 NG/ML, 7 DROPS IN THE EVENING
     Route: 048

REACTIONS (2)
  - Loss of consciousness [Recovered/Resolved]
  - Malaise [Recovering/Resolving]

NARRATIVE: CASE EVENT DATE: 201408
